FAERS Safety Report 8152513-7 (Version None)
Quarter: 2012Q1

REPORT INFORMATION
  Report Type: 
  Country: None (occurrence: None)
  Receive Date: 20120221
  Receipt Date: 20120209
  Transmission Date: 20120608
  Serious: Yes (Hospitalization)
  Sender: FDA-Public Use
  Company Number: IT-JNJFOC-20120206045

PATIENT
  Sex: Male

DRUGS (14)
  1. LIMPIDEX [Concomitant]
     Indication: GASTROINTESTINAL DISORDER THERAPY
     Dates: start: 20110913
  2. PREDNISONE [Suspect]
     Indication: PROSTATE CANCER METASTATIC
     Route: 048
     Dates: start: 20111214
  3. ABIRATERONE ACETATE [Suspect]
     Route: 048
  4. ABIRATERONE ACETATE [Suspect]
     Indication: PROSTATE CANCER
     Route: 048
     Dates: start: 20111228, end: 20120202
  5. PLAUNAZIDE [Concomitant]
     Route: 048
     Dates: start: 20110103
  6. MOVIPREP [Concomitant]
     Indication: CONSTIPATION
     Route: 048
     Dates: start: 20111130
  7. VOLTAREN [Concomitant]
     Indication: PAIN
     Route: 048
  8. IRON PREPARATION [Concomitant]
     Route: 048
     Dates: start: 20111214
  9. DIBASE [Concomitant]
     Route: 048
  10. CALCIUM SANDOZ FORTISSIMUM [Concomitant]
     Route: 048
  11. OXYCONTIN [Concomitant]
     Indication: PAIN
     Route: 048
  12. PURSENNID [Concomitant]
     Indication: CONSTIPATION
     Route: 048
     Dates: start: 20111214
  13. LIMICAN [Concomitant]
     Indication: NAUSEA
     Route: 048
  14. VOLTAREN [Concomitant]
     Route: 030

REACTIONS (2)
  - ANAEMIA [None]
  - HAEMATURIA [None]
